FAERS Safety Report 5330847-9 (Version None)
Quarter: 2007Q2

REPORT INFORMATION
  Report Type: 
  Country: None (occurrence: None)
  Receive Date: 20070522
  Receipt Date: 20070514
  Transmission Date: 20071010
  Serious: Yes (Death, Hospitalization)
  Sender: FDA-Public Use
  Company Number: US-ELI_LILLY_AND_COMPANY-US200609006782

PATIENT
  Age: 75 Year
  Sex: Female

DRUGS (2)
  1. AREDIA                                  /SWE/ [Concomitant]
     Indication: METASTASES TO BONE
     Dosage: UNK, MONTHLY (1/M)
  2. GEMZAR [Suspect]
     Indication: BREAST CANCER METASTATIC
     Dosage: UNK, UNK
     Route: 042
     Dates: start: 20050922, end: 20051201

REACTIONS (14)
  - ANAEMIA [None]
  - ASTHENIA [None]
  - BLOOD LACTATE DEHYDROGENASE INCREASED [None]
  - DRUG INTOLERANCE [None]
  - DYSPNOEA [None]
  - FATIGUE [None]
  - FEELING ABNORMAL [None]
  - HYPOAESTHESIA FACIAL [None]
  - LUNG INFECTION [None]
  - MALAISE [None]
  - NEUROLOGICAL SYMPTOM [None]
  - NO THERAPEUTIC RESPONSE [None]
  - THROMBOTIC THROMBOCYTOPENIC PURPURA [None]
  - TONGUE PARALYSIS [None]
